FAERS Safety Report 18086875 (Version 1)
Quarter: 2020Q3

REPORT INFORMATION
  Report Type: Spontaneous
  Country: CO (occurrence: CO)
  Receive Date: 20200728
  Receipt Date: 20200728
  Transmission Date: 20201103
  Serious: Yes (Life-Threatening)
  Sender: FDA-Public Use
  Company Number: None

PATIENT
  Age: 34 Year
  Sex: Male
  Weight: 58 kg

DRUGS (1)
  1. PRESSIVO PAROXETINA 20 MG [Suspect]
     Active Substance: PAROXETINE
     Indication: ANXIETY
     Dosage: ?          QUANTITY:1 TABLET(S);?
     Route: 048
     Dates: start: 20200720, end: 20200724

REACTIONS (11)
  - Throat tightness [None]
  - Thirst [None]
  - Vision blurred [None]
  - Fatigue [None]
  - Dyspnoea [None]
  - Tremor [None]
  - Lip discolouration [None]
  - Feeling cold [None]
  - Dizziness [None]
  - Paraesthesia [None]
  - Therapy cessation [None]

NARRATIVE: CASE EVENT DATE: 20200726
